FAERS Safety Report 7487199-8 (Version None)
Quarter: 2011Q2

REPORT INFORMATION
  Report Type: 
  Country: None (occurrence: None)
  Receive Date: 20110518
  Receipt Date: 20110509
  Transmission Date: 20111010
  Serious: Yes (Hospitalization, Other)
  Sender: FDA-Public Use
  Company Number: DE-BAYER-2011-039060

PATIENT
  Age: 16 Year
  Sex: Female

DRUGS (1)
  1. YAZ [Suspect]
     Indication: CONTRACEPTION
     Dosage: UNK
     Dates: end: 20110422

REACTIONS (6)
  - CIRCULATORY COLLAPSE [None]
  - WEIGHT DECREASED [None]
  - DIARRHOEA [None]
  - ALOPECIA [None]
  - MIGRAINE [None]
  - BLADDER DISORDER [None]
